FAERS Safety Report 5796035-7 (Version None)
Quarter: 2008Q2

REPORT INFORMATION
  Report Type: 
  Country: None (occurrence: None)
  Receive Date: 20080626
  Receipt Date: 20080617
  Transmission Date: 20081010
  Serious: Yes (Hospitalization)
  Sender: FDA-Public Use
  Company Number: CERZ-1000258

PATIENT
  Age: 67 Year
  Sex: Male

DRUGS (1)
  1. CEREZYME [Suspect]
     Indication: GAUCHER'S DISEASE
     Dosage: 2400 U, Q2W, INTRAVENOUS; 30 U/KG, Q2W, INTRAVENOUS
     Route: 042
     Dates: start: 20060415, end: 20071211

REACTIONS (5)
  - ABDOMINAL PAIN UPPER [None]
  - DYSPNOEA [None]
  - METASTASES TO PERITONEUM [None]
  - METASTATIC GASTRIC CANCER [None]
  - PALLOR [None]
